FAERS Safety Report 20233176 (Version 4)
Quarter: 2024Q1

REPORT INFORMATION
  Report Type: Spontaneous
  Country: US (occurrence: US)
  Receive Date: 20211227
  Receipt Date: 20240110
  Transmission Date: 20240410
  Serious: Yes (Other)
  Sender: FDA-Public Use
  Company Number: US-009507513-2112USA003850

PATIENT
  Age: 27 Year
  Sex: Female
  Weight: 56.689 kg

DRUGS (26)
  1. KEYTRUDA [Suspect]
     Active Substance: PEMBROLIZUMAB
     Indication: Hodgkin^s disease
     Dosage: UNK
     Dates: start: 20180206
  2. KEYTRUDA [Suspect]
     Active Substance: PEMBROLIZUMAB
     Dosage: 200 MG EVERY 6 WEEKS
     Route: 042
     Dates: start: 20180227, end: 20180227
  3. KEYTRUDA [Suspect]
     Active Substance: PEMBROLIZUMAB
     Dosage: 200 MILLIGRAM, EVERY 6 WEEKS
     Route: 042
     Dates: start: 20211102, end: 20211102
  4. KEYTRUDA [Suspect]
     Active Substance: PEMBROLIZUMAB
     Dosage: UNK
     Dates: start: 20221017, end: 20221017
  5. KEYTRUDA [Suspect]
     Active Substance: PEMBROLIZUMAB
     Dosage: 200 MILLIGRAM, EVERY 6 WEEKS
     Route: 042
     Dates: start: 20231215, end: 20231215
  6. NEURONTIN [Concomitant]
     Active Substance: GABAPENTIN
     Indication: Neurogenic bowel
     Dosage: 1 CAPSULE (400 MG), TID
     Route: 048
  7. NEURONTIN [Concomitant]
     Active Substance: GABAPENTIN
     Indication: Neuropathy peripheral
  8. ASCORBIC ACID [Concomitant]
     Active Substance: ASCORBIC ACID
     Dosage: 1000 MILLIGRAM, 1 TIME PER DAY
     Route: 048
  9. VITAMIN D3 [Concomitant]
     Active Substance: CHOLECALCIFEROL
     Dosage: 2000 INTERNATIONAL UNIT, 1 TIME PER DAY
     Route: 048
  10. ZINC [Concomitant]
     Active Substance: PYRITHIONE ZINC\ZINC\ZINC CHLORIDE
     Dosage: 30 MILLIGRAM, 1 TIME PER DAY
     Route: 048
  11. D-MANNOSE [Concomitant]
     Dosage: 2 TABLETS, 1 TIME PER DAY
     Route: 048
  12. DITROPAN XL [Concomitant]
     Active Substance: OXYBUTYNIN CHLORIDE
     Dosage: 1 TABLET (5 MG), 1 TIME PER DAY
     Route: 048
  13. HIPREX [METHENAMINE HIPPURATE] [Concomitant]
     Dosage: 1 TABLET (1 G), 1 TIME PER DAY
     Route: 048
  14. PREMARIN [Concomitant]
     Active Substance: ESTROGENS, CONJUGATED
     Dosage: APPLY 1 INCH, 3 TIMES PER WEEK
     Route: 067
  15. LIDOCAINE HYDROCHLORIDE [Concomitant]
     Active Substance: LIDOCAINE HYDROCHLORIDE
     Indication: Stomatitis
     Dosage: 15 MILLILITER, EVERY 6 HOURS AS NEEDED
     Route: 048
  16. VITAMIN A [Concomitant]
     Active Substance: VITAMIN A
     Dosage: 10000 UNITS, TWO TIMES A DAY
     Route: 048
  17. POTASSIUM [Concomitant]
     Active Substance: POTASSIUM
     Dosage: 550 MILLIGRAM, TWO TIMES A DAY
     Route: 048
  18. ZOFRAN [Concomitant]
     Active Substance: ONDANSETRON HYDROCHLORIDE
     Indication: Nausea
     Dosage: 1 TABLET (8MG) EVERY 8 HOURS AS NEEDED
     Route: 048
  19. ZOFRAN [Concomitant]
     Active Substance: ONDANSETRON HYDROCHLORIDE
     Indication: Vomiting
  20. PHENERGAN [Concomitant]
     Active Substance: PROMETHAZINE HYDROCHLORIDE
     Indication: Nausea
     Dosage: APPLY 0.2 ML (25 MG) EVERY 6 HOURS AS NEEDED
     Route: 061
  21. LEVAQUIN [Concomitant]
     Active Substance: LEVOFLOXACIN
     Dosage: 1 TABLET (500 MG), 1 TIME PER DAY
     Route: 048
  22. ZITHROMAX [Concomitant]
     Active Substance: AZITHROMYCIN DIHYDRATE
     Dosage: 2 TABLET, TODAY
     Route: 048
  23. ZITHROMAX [Concomitant]
     Active Substance: AZITHROMYCIN DIHYDRATE
     Dosage: 1 TABLET, EVERY DAY
     Route: 048
  24. FLONASE [Concomitant]
     Active Substance: FLUTICASONE PROPIONATE
     Indication: Ear infection
     Dosage: 2 SPRAYS INTO EACH NOSTRIL 1 TIME A DAY AS NEEDED,PRN
     Route: 045
  25. PROVENTIL [Concomitant]
     Active Substance: ALBUTEROL
     Indication: Dyspnoea
     Dosage: 1 NEBULE 4 TIMES A DAY AS NEEDED, PRN, STRENGTH: 2.5MG/3ML
  26. PROVENTIL [Concomitant]
     Active Substance: ALBUTEROL
     Indication: Wheezing

REACTIONS (27)
  - Cauda equina syndrome [Unknown]
  - Colitis ulcerative [Unknown]
  - Immunodeficiency [Unknown]
  - Bone marrow transplant [Unknown]
  - Enterocolitis [Unknown]
  - Pneumonia [Unknown]
  - Nephrolithiasis [Unknown]
  - Polyp [Unknown]
  - Tachycardia [Unknown]
  - Neurogenic bowel [Unknown]
  - Sinusitis [Unknown]
  - Cystitis [Unknown]
  - Oesophagitis [Unknown]
  - Lung opacity [Unknown]
  - Urinary tract infection [Unknown]
  - Mediastinal mass [Unknown]
  - Iron deficiency anaemia [Unknown]
  - Pain in extremity [Unknown]
  - Anaemia [Unknown]
  - Nausea [Unknown]
  - Vomiting [Unknown]
  - Bronchitis [Unknown]
  - Localised oedema [Unknown]
  - COVID-19 [Unknown]
  - Incorrect product administration duration [Unknown]
  - Product use issue [Unknown]
  - Product dose omission issue [Unknown]

NARRATIVE: CASE EVENT DATE: 20180227
